FAERS Safety Report 8338368-6 (Version None)
Quarter: 2012Q1

REPORT INFORMATION
  Report Type: 
  Country: None (occurrence: None)
  Receive Date: 20120329
  Receipt Date: 20081023
  Transmission Date: 20120608
  Serious: Yes (Hospitalization)
  Sender: FDA-Public Use
  Company Number: PHEH2008US08287

PATIENT
  Age: 40 Year
  Sex: Female

DRUGS (2)
  1. LAMISIL [Suspect]
     Indication: TINEA PEDIS
     Dosage: 250 MG, QD, ORAL
     Route: 048
     Dates: start: 20080808, end: 20080907
  2. LAMISIL [Suspect]
     Indication: ONYCHOMYCOSIS
     Dosage: 250 MG, QD, ORAL
     Route: 048
     Dates: start: 20080808, end: 20080907

REACTIONS (6)
  - RASH MACULAR [None]
  - RASH VESICULAR [None]
  - CHROMATURIA [None]
  - RASH PAPULAR [None]
  - DERMATITIS [None]
  - SKIN HYPERPIGMENTATION [None]
